FAERS Safety Report 6413824-6 (Version None)
Quarter: 2009Q4

REPORT INFORMATION
  Report Type: 
  Country: None (occurrence: None)
  Receive Date: 20091026
  Receipt Date: 20091023
  Transmission Date: 20100525
  Serious: Yes (Hospitalization, Disabling)
  Sender: FDA-Public Use
  Company Number: A0722342A

PATIENT
  Age: 43 Year
  Sex: Female

DRUGS (1)
  1. AMOXICILLIN AND CLAVULANATE POTASSIUM [Suspect]
     Indication: DRUG USE FOR UNKNOWN INDICATION
     Route: 048
     Dates: start: 20050329

REACTIONS (23)
  - AUTOIMMUNE THROMBOCYTOPENIA [None]
  - BACK PAIN [None]
  - BACTEROIDES BACTERAEMIA [None]
  - BLINDNESS [None]
  - CATARACT OPERATION [None]
  - CORNEAL TRANSPLANT [None]
  - DEEP VEIN THROMBOSIS [None]
  - DRUG HYPERSENSITIVITY [None]
  - DRY MOUTH [None]
  - EPISTAXIS [None]
  - KERATOCONJUNCTIVITIS SICCA [None]
  - KLEBSIELLA BACTERAEMIA [None]
  - MUCOSAL HAEMORRHAGE [None]
  - OCULAR SURFACE DISEASE [None]
  - PSEUDOMONAL BACTERAEMIA [None]
  - SCAR [None]
  - SKIN INFECTION [None]
  - STEVENS-JOHNSON SYNDROME [None]
  - SYSTEMIC LUPUS ERYTHEMATOSUS [None]
  - THROMBOCYTOPENIA [None]
  - TOXIC EPIDERMAL NECROLYSIS [None]
  - TRICHIASIS [None]
  - URINARY TRACT INFECTION [None]
